FAERS Safety Report 9478881 (Version 3)
Quarter: 2013Q3

REPORT INFORMATION
  Report Type: Spontaneous
  Country: JP (occurrence: JP)
  Receive Date: 20130827
  Receipt Date: 20130911
  Transmission Date: 20140515
  Serious: Yes (Hospitalization)
  Sender: FDA-Public Use
  Company Number: JP-ABBOTT-13P-087-1138630-00

PATIENT
  Age: 51 Year
  Sex: Male

DRUGS (4)
  1. HUMIRA [Suspect]
     Indication: CROHN^S DISEASE
     Route: 058
  2. HUMIRA [Suspect]
  3. HUMIRA [Suspect]
  4. PENTASA [Suspect]
     Indication: CROHN^S DISEASE
     Dosage: DURATION: ABOUT 10 YEARS
     Route: 048
     Dates: end: 20130812

REACTIONS (11)
  - Pericardial effusion [Unknown]
  - Lupus-like syndrome [Recovered/Resolved]
  - Viral infection [Unknown]
  - Immunodeficiency [Unknown]
  - C-reactive protein increased [Unknown]
  - Pyrexia [Unknown]
  - Puncture site haemorrhage [Unknown]
  - Antinuclear antibody increased [Unknown]
  - Cardiolipin antibody positive [Unknown]
  - Unevaluable event [Unknown]
  - Feeling abnormal [Unknown]
